FAERS Safety Report 23362756 (Version 1)
Quarter: 2024Q1

REPORT INFORMATION
  Report Type: Spontaneous
  Country: US (occurrence: None)
  Receive Date: 20240103
  Receipt Date: 20240103
  Transmission Date: 20240410
  Serious: No
  Sender: FDA-Public Use
  Company Number: None

PATIENT
  Age: 89 Year
  Sex: Female
  Weight: 76.2 kg

DRUGS (1)
  1. XELODA [Suspect]
     Active Substance: CAPECITABINE
     Dates: end: 20231228

REACTIONS (3)
  - Fatigue [None]
  - Laboratory test abnormal [None]
  - Therapy interrupted [None]

NARRATIVE: CASE EVENT DATE: 20231228
